FAERS Safety Report 5797876-2 (Version None)
Quarter: 2008Q2

REPORT INFORMATION
  Report Type: 
  Country: None (occurrence: None)
  Receive Date: 20080630
  Receipt Date: 20080613
  Transmission Date: 20081010
  Serious: Yes (Hospitalization)
  Sender: FDA-Public Use
  Company Number: DSA_32057_2008

PATIENT
  Sex: Male

DRUGS (11)
  1. LORAZEPAM [Suspect]
     Indication: DRUG USE FOR UNKNOWN INDICATION
     Dosage: (.05 MG QD ORAL), (0.25 MG QD ORAL)
     Route: 048
     Dates: start: 20080119, end: 20080219
  2. LORAZEPAM [Suspect]
     Indication: DRUG USE FOR UNKNOWN INDICATION
     Dosage: (.05 MG QD ORAL), (0.25 MG QD ORAL)
     Route: 048
     Dates: start: 20080220, end: 20080221
  3. TREVILOR (TREVILOR RETARD - VENLAFAXINE HYDROCHLORIDE) (NOT SPECIFIED) [Suspect]
     Indication: DRUG USE FOR UNKNOWN INDICATION
     Dosage: (75 MG QD ORAL), (150 MG QD ORAL), (225 MG QD ORAL)
     Route: 048
     Dates: start: 20080201, end: 20080220
  4. TREVILOR (TREVILOR RETARD - VENLAFAXINE HYDROCHLORIDE) (NOT SPECIFIED) [Suspect]
     Indication: DRUG USE FOR UNKNOWN INDICATION
     Dosage: (75 MG QD ORAL), (150 MG QD ORAL), (225 MG QD ORAL)
     Route: 048
     Dates: start: 20080221, end: 20080222
  5. TREVILOR (TREVILOR RETARD - VENLAFAXINE HYDROCHLORIDE) (NOT SPECIFIED) [Suspect]
     Indication: DRUG USE FOR UNKNOWN INDICATION
     Dosage: (75 MG QD ORAL), (150 MG QD ORAL), (225 MG QD ORAL)
     Route: 048
     Dates: start: 20080223, end: 20080303
  6. LITHIOFOR [Concomitant]
  7. TEGRETOL [Concomitant]
  8. CARBAMAZEPINE [Concomitant]
  9. LEVOTHYROXINE SODIUM [Concomitant]
  10. PERAZINE (PERAZINE) [Suspect]
     Indication: DRUG USE FOR UNKNOWN INDICATION
     Dosage: (250 MG QD ORAL), (TAPERED FROM 250 MG PER DAY ORAL)
     Route: 048
     Dates: end: 20080219
  11. PERAZINE (PERAZINE) [Suspect]
     Indication: DRUG USE FOR UNKNOWN INDICATION
     Dosage: (250 MG QD ORAL), (TAPERED FROM 250 MG PER DAY ORAL)
     Route: 048
     Dates: start: 20080220, end: 20080224

REACTIONS (7)
  - ABNORMAL BEHAVIOUR [None]
  - ANXIETY [None]
  - MALAISE [None]
  - OBSESSIVE THOUGHTS [None]
  - PERSONALITY DISORDER [None]
  - REFUSAL OF TREATMENT BY PATIENT [None]
  - SUICIDAL IDEATION [None]
